FAERS Safety Report 24592975 (Version 1)
Quarter: 2024Q4

REPORT INFORMATION
  Report Type: Spontaneous
  Country: US (occurrence: US)
  Receive Date: 20241108
  Receipt Date: 20241108
  Transmission Date: 20250115
  Serious: No
  Sender: XERIS PHARMACEUTICALS
  Company Number: US-BRIAN CONNER SVP QUALITY AND CHIEF COMPLIANCE OFFICER-2024XER00357

PATIENT
  Age: 66 Year
  Sex: Male
  Weight: 99.79 kg

DRUGS (12)
  1. GVOKE [Suspect]
     Active Substance: GLUCAGON
     Indication: Type 2 diabetes mellitus
     Dosage: 1 MG, INJECTED IN LEFT LEG/MID-THIGH, 6-8 INCHES ABOVE THE KNEE
     Dates: start: 20240615, end: 20240615
  2. GVOKE [Suspect]
     Active Substance: GLUCAGON
     Indication: Hypoglycaemia
  3. PIOGLITAZONE [Concomitant]
     Active Substance: PIOGLITAZONE
     Dosage: 30 MG, 1X/DAY
  4. GLIMEPIRIDE [Concomitant]
     Active Substance: GLIMEPIRIDE
     Dosage: 2 MG, 1X/DAY
  5. ROSUVASTATIN [Concomitant]
     Active Substance: ROSUVASTATIN
     Dosage: 10 MG, 1X/DAY
  6. RAMIPRIL [Concomitant]
     Active Substance: RAMIPRIL
     Dosage: 10 MG, 1X/DAY
  7. SYNJARDY [Concomitant]
     Active Substance: EMPAGLIFLOZIN\METFORMIN HYDROCHLORIDE
     Dosage: 1 TABLETS, 2X/DAY
  8. OZEMPIC [Concomitant]
     Active Substance: SEMAGLUTIDE
     Dosage: 1 MG
  9. NOVOLOG [Concomitant]
     Active Substance: INSULIN ASPART
     Dosage: 7 DOSAGE UNITS, 1X/DAY
  10. CELECOXIB [Concomitant]
     Active Substance: CELECOXIB
     Indication: Pain
     Dosage: 100 MG, 2X/DAY
  11. FISH OIL [Concomitant]
     Active Substance: FISH OIL
  12. HERBALS\TURMERIC [Concomitant]
     Active Substance: HERBALS\TURMERIC

REACTIONS (4)
  - Middle insomnia [Unknown]
  - Injection site hypoaesthesia [Not Recovered/Not Resolved]
  - Injection site pain [Recovered/Resolved]
  - Hypersensitivity [Unknown]

NARRATIVE: CASE EVENT DATE: 20240615
